FAERS Safety Report 9677879 (Version 4)
Quarter: 2015Q3

REPORT INFORMATION
  Report Type: Report from Study
  Country: TR (occurrence: TR)
  Receive Date: 20131108
  Receipt Date: 20150908
  Transmission Date: 20151125
  Serious: Yes (Death)
  Sender: FDA-Public Use
  Company Number: TR-ROCHE-1299397

PATIENT
  Age: 59 Year
  Sex: Male
  Weight: 70 kg

DRUGS (11)
  1. NORTAN [Concomitant]
     Dosage: INDICATION: HT
     Route: 048
     Dates: end: 20131030
  2. NORVASC [Concomitant]
     Active Substance: AMLODIPINE BESYLATE
     Indication: HYPERTENSION
     Dosage: ROUTE:POR
     Route: 048
  3. GLIFOR [Concomitant]
     Active Substance: METFORMIN HYDROCHLORIDE
     Indication: DIABETES MELLITUS
     Dosage: ROUTE:POR
     Route: 048
  4. LASIX [Concomitant]
     Active Substance: FUROSEMIDE
     Indication: OEDEMA
     Dosage: 1AMPULE
     Route: 048
     Dates: start: 20131027, end: 20131027
  5. METPAMID [Concomitant]
     Indication: NAUSEA
     Dosage: 1 AMPULE
     Route: 042
     Dates: start: 20131026, end: 20131027
  6. EMEND [Concomitant]
     Active Substance: APREPITANT
     Indication: NAUSEA
     Route: 048
     Dates: start: 20131024, end: 20131024
  7. FLUOROURACIL. [Suspect]
     Active Substance: FLUOROURACIL
     Indication: HER-2 POSITIVE GASTRIC CANCER
     Route: 042
     Dates: start: 20131024, end: 20131027
  8. PLACEBO [Suspect]
     Active Substance: UNSPECIFIED INGREDIENT
     Indication: HER-2 POSITIVE GASTRIC CANCER
     Dosage: LAST DOSE PRIOR TO SAE:24/OCT/2013
     Route: 042
     Dates: start: 20131024
  9. TRASTUZUMAB [Suspect]
     Active Substance: TRASTUZUMAB
     Indication: HER-2 POSITIVE GASTRIC CANCER
     Dosage: DATE OF  LAST DOSE: 24/OCT/2013
     Route: 042
     Dates: start: 20131024
  10. CISPLATIN. [Suspect]
     Active Substance: CISPLATIN
     Indication: HER-2 POSITIVE GASTRIC CANCER
     Route: 042
     Dates: start: 20131024, end: 20131027
  11. LAPILORI [Concomitant]
     Indication: PROPHYLAXIS
     Route: 048
     Dates: end: 20131030

REACTIONS (1)
  - Pulmonary embolism [Fatal]

NARRATIVE: CASE EVENT DATE: 20131030
